FAERS Safety Report 8547023-9 (Version None)
Quarter: 2012Q3

REPORT INFORMATION
  Report Type: 
  Country: None (occurrence: None)
  Receive Date: 20120727
  Receipt Date: 20120312
  Transmission Date: 20120928
  Serious: No
  Sender: FDA-Public Use
  Company Number: US-ASTRAZENECA-2012SE16737

PATIENT
  Age: 42 Year
  Sex: Male
  Weight: 90.7 kg

DRUGS (2)
  1. SEROQUEL [Suspect]
     Indication: BIPOLAR I DISORDER
     Route: 048
  2. SEROQUEL [Suspect]
     Route: 048

REACTIONS (2)
  - ANGINA PECTORIS [None]
  - DRUG PRESCRIBING ERROR [None]
